FAERS Safety Report 16678300 (Version 1)
Quarter: 2019Q3

REPORT INFORMATION
  Report Type: Spontaneous
  Country: US (occurrence: US)
  Receive Date: 20190807
  Receipt Date: 20190807
  Transmission Date: 20191004
  Serious: Yes (Hospitalization, Other)
  Sender: FDA-Public Use
  Company Number: US-HIKMA PHARMACEUTICALS USA INC.-US-H14001-19-46393

PATIENT
  Age: 44 Year
  Sex: Male

DRUGS (3)
  1. HALOPERIDOL. [Suspect]
     Active Substance: HALOPERIDOL
     Indication: SCHIZOPHRENIA
     Dosage: QHS, DOSE WAS INCREASED TO 15 MG QHS FROM 9/4 TO 9/9
     Route: 065
  2. PALIPERIDONE PALMITATE [Concomitant]
     Active Substance: PALIPERIDONE PALMITATE
     Indication: SCHIZOPHRENIA
     Route: 065
  3. HALOPERIDOL. [Suspect]
     Active Substance: HALOPERIDOL
     Indication: SCHIZOPHRENIA
     Dosage: QHS, DOSE WAS INITIATED ON 8/31 AND THEN CONTINUED UNTIL 9/3
     Route: 065

REACTIONS (3)
  - Toxicity to various agents [Recovered/Resolved]
  - Hypersensitivity [Recovered/Resolved]
  - Transaminases increased [Recovered/Resolved]
